FAERS Safety Report 8304824-X (Version None)
Quarter: 2012Q2

REPORT INFORMATION
  Report Type: 
  Country: None (occurrence: None)
  Receive Date: 20120423
  Receipt Date: 20120416
  Transmission Date: 20120825
  Serious: No
  Sender: FDA-Public Use
  Company Number: US-PFIZER INC-2012095147

PATIENT
  Sex: Female

DRUGS (2)
  1. XALKORI [Suspect]
     Dosage: UNK, 1X/DAY
  2. XALKORI [Suspect]
     Indication: LUNG NEOPLASM MALIGNANT
     Dosage: 200 MG (1 CAPSULE), 2X/DAY
     Dates: start: 20120322

REACTIONS (2)
  - FATIGUE [None]
  - ABDOMINAL PAIN [None]
